FAERS Safety Report 7767257-0 (Version None)
Quarter: 2011Q3

REPORT INFORMATION
  Report Type: 
  Country: None (occurrence: None)
  Receive Date: 20110922
  Receipt Date: 20110331
  Transmission Date: 20111222
  Serious: No
  Sender: FDA-Public Use
  Company Number: US-ASTRAZENECA-2011SE12430

PATIENT
  Age: 54 Year
  Sex: Female

DRUGS (2)
  1. SEROQUEL [Suspect]
     Indication: POST-TRAUMATIC STRESS DISORDER
     Dosage: 75 MG DURING THE DAY AND 200 MG AT NIGHT
     Route: 048
     Dates: start: 20090101
  2. SEROQUEL [Suspect]
     Indication: BIPOLAR DISORDER
     Dosage: 75 MG DURING THE DAY AND 200 MG AT NIGHT
     Route: 048
     Dates: start: 20090101

REACTIONS (6)
  - HYPERHIDROSIS [None]
  - DRUG DOSE OMISSION [None]
  - DEPRESSED MOOD [None]
  - PAIN IN EXTREMITY [None]
  - INSOMNIA [None]
  - VISION BLURRED [None]
